FAERS Safety Report 18283473 (Version 2)
Quarter: 2021Q1

REPORT INFORMATION
  Report Type: Spontaneous
  Country: US (occurrence: US)
  Receive Date: 20200918
  Receipt Date: 20210126
  Transmission Date: 20210419
  Serious: No
  Sender: FDA-Public Use
  Company Number: US-TEVA-2020-US-1827587

PATIENT

DRUGS (1)
  1. AJOVY [Suspect]
     Active Substance: FREMANEZUMAB-VFRM
     Route: 065
     Dates: start: 20200906

REACTIONS (5)
  - Feeling abnormal [Unknown]
  - Needle fatigue [Unknown]
  - Injection site extravasation [Unknown]
  - Injection site haemorrhage [Unknown]
  - Incorrect dose administered [Unknown]
